FAERS Safety Report 5657619-X (Version None)
Quarter: 2008Q1

REPORT INFORMATION
  Report Type: 
  Country: None (occurrence: None)
  Receive Date: 20080307
  Receipt Date: 20080307
  Transmission Date: 20080703
  Serious: Yes (Other)
  Sender: FDA-Public Use
  Company Number: None

PATIENT
  Age: 28 Year
  Sex: Male
  Weight: 80.2867 kg

DRUGS (2)
  1. CHANTIX [Suspect]
     Dosage: 1MG BID
     Dates: start: 20070919, end: 20071110
  2. CHANTIX [Suspect]
     Dosage: 1MG BID
     Dates: start: 20080220, end: 20080302

REACTIONS (4)
  - ANXIETY [None]
  - DEPRESSION [None]
  - MENTAL DISORDER [None]
  - PSYCHIATRIC SYMPTOM [None]
